FAERS Safety Report 15465243 (Version 1)
Quarter: 2018Q4

REPORT INFORMATION
  Report Type: Report from Study
  Country: US (occurrence: US)
  Receive Date: 20181004
  Receipt Date: 20181004
  Transmission Date: 20190204
  Serious: Yes (Hospitalization, Disabling, Other)
  Sender: FDA-Public Use
  Company Number: US-MYLANLABS-2018M1070936

PATIENT
  Age: 11 Year
  Sex: Male

DRUGS (10)
  1. BLEOMYCIN [Concomitant]
     Active Substance: BLEOMYCIN SULFATE
     Indication: VASCULAR MALFORMATION
     Route: 050
  2. DEHYDRATED ALCOHOL [Concomitant]
     Active Substance: ALCOHOL
     Indication: VASCULAR MALFORMATION
     Route: 050
  3. OTHER THERAPEUTIC PRODUCTS [Concomitant]
     Active Substance: UNSPECIFIED INGREDIENT
     Route: 050
  4. OTHER THERAPEUTIC PRODUCTS [Concomitant]
     Active Substance: UNSPECIFIED INGREDIENT
     Route: 050
  5. DEHYDRATED ALCOHOL [Concomitant]
     Active Substance: ALCOHOL
     Route: 050
  6. SOTRADECOL [Suspect]
     Active Substance: SODIUM TETRADECYL SULFATE
     Indication: PAIN IN EXTREMITY
     Route: 050
  7. SOTRADECOL [Suspect]
     Active Substance: SODIUM TETRADECYL SULFATE
     Indication: VASCULAR MALFORMATION
  8. SIROLIMUS. [Suspect]
     Active Substance: SIROLIMUS
     Indication: HAMARTOMA
     Route: 048
  9. ENBUCRILATE [Suspect]
     Active Substance: ENBUCRILATE
     Indication: VASCULAR MALFORMATION
     Route: 050
  10. OTHER THERAPEUTIC PRODUCTS [Concomitant]
     Active Substance: UNSPECIFIED INGREDIENT
     Indication: VASCULAR MALFORMATION
     Route: 050

REACTIONS (2)
  - Bone loss [Not Recovered/Not Resolved]
  - Necrosis ischaemic [Unknown]
